FAERS Safety Report 4935307-2 (Version None)
Quarter: 2006Q1

REPORT INFORMATION
  Report Type: 
  Country: None (occurrence: None)
  Receive Date: 20060307
  Receipt Date: 20050315
  Transmission Date: 20060701
  Serious: Yes (Other)
  Sender: FDA-Public Use
  Company Number: US-MERCK-0503USA03171

PATIENT
  Age: 44 Year
  Sex: Male
  Weight: 88 kg

DRUGS (2)
  1. VIOXX [Suspect]
     Indication: PAIN
     Route: 048
     Dates: start: 19990401, end: 19991201
  2. VICODIN [Concomitant]
     Route: 065

REACTIONS (13)
  - CARDIAC DISORDER [None]
  - CARDIAC FAILURE [None]
  - CARDIAC MURMUR [None]
  - CARDIOVASCULAR DISORDER [None]
  - CEREBROVASCULAR ACCIDENT [None]
  - CHEST PAIN [None]
  - HEPATOCELLULAR DAMAGE [None]
  - MYOCARDIAL INFARCTION [None]
  - OVERDOSE [None]
  - PULSE ABNORMAL [None]
  - RENAL INJURY [None]
  - THROMBOSIS [None]
  - ULCER [None]
